FAERS Safety Report 12695060 (Version 2)
Quarter: 2016Q3

REPORT INFORMATION
  Report Type: Spontaneous
  Country: AU (occurrence: AU)
  Receive Date: 20160829
  Receipt Date: 20160913
  Transmission Date: 20161109
  Serious: Yes (Other)
  Sender: FDA-Public Use
  Company Number: PHHY2016AU117378

PATIENT
  Age: 71 Year
  Sex: Female

DRUGS (1)
  1. ESTRADOT [Suspect]
     Active Substance: ESTRADIOL
     Indication: PRODUCT USED FOR UNKNOWN INDICATION
     Dosage: UNK
     Route: 062

REACTIONS (8)
  - Cardiac disorder [Unknown]
  - Nausea [Unknown]
  - Hyperhidrosis [Unknown]
  - Gastritis [Unknown]
  - Wrong technique in product usage process [Unknown]
  - Arthritis [Unknown]
  - Atrial fibrillation [Unknown]
  - Drug ineffective [Unknown]
